FAERS Safety Report 9986281 (Version 1)
Quarter: 2014Q1

REPORT INFORMATION
  Report Type: Report from Study
  Country: US (occurrence: US)
  Receive Date: 20140307
  Receipt Date: 20140307
  Transmission Date: 20141002
  Serious: No
  Sender: FDA-Public Use
  Company Number: US-ABBVIE-13P-163-1086735-00

PATIENT
  Age: 60 Year
  Sex: Female

DRUGS (20)
  1. HUMIRA [Suspect]
     Indication: PSORIATIC ARTHROPATHY
     Dates: start: 20130222, end: 20130503
  2. CARBAMAZEPINE [Concomitant]
     Indication: BIPOLAR DISORDER
  3. CARBAMAZEPINE [Concomitant]
     Indication: DEPRESSION
  4. CYMBALTA [Concomitant]
     Indication: BIPOLAR DISORDER
  5. CRESTOR [Concomitant]
     Indication: BLOOD CHOLESTEROL INCREASED
  6. GEMFIBROZIL [Concomitant]
     Indication: BLOOD CHOLESTEROL INCREASED
  7. ARAVA [Concomitant]
     Indication: PSORIATIC ARTHROPATHY
  8. OMEPRAZOLE [Concomitant]
     Indication: PRODUCT USED FOR UNKNOWN INDICATION
  9. PIOGLITAZONE-METFORMIN [Concomitant]
     Indication: DIABETES MELLITUS
     Dosage: 15-850MG
  10. RAMIPRIL [Concomitant]
     Indication: HYPERTENSION
  11. TRAZODONE [Concomitant]
     Indication: INSOMNIA
     Dosage: AT BEDTIME
  12. VOLTAREN [Concomitant]
     Indication: ARTHRALGIA
     Dosage: BID-TID
  13. VICTOZA [Concomitant]
     Indication: DIABETES MELLITUS
     Dosage: IN THE MORNING
  14. APIDRA [Concomitant]
     Indication: DIABETES MELLITUS
     Dosage: PER SLIDING SCALE
  15. LANTUS [Concomitant]
     Indication: DIABETES MELLITUS
     Dosage: 30 UNITS IN THE MORNING, 60 UNITS IN THE EVENING
  16. ZINC [Concomitant]
     Indication: PRODUCT USED FOR UNKNOWN INDICATION
  17. VITAMIN D [Concomitant]
     Indication: PRODUCT USED FOR UNKNOWN INDICATION
  18. MULTIVITAMIN [Concomitant]
     Indication: PRODUCT USED FOR UNKNOWN INDICATION
  19. KRILL OIL [Concomitant]
     Indication: PRODUCT USED FOR UNKNOWN INDICATION
  20. SULFASALAZINE [Concomitant]
     Indication: PRODUCT USED FOR UNKNOWN INDICATION

REACTIONS (1)
  - Drug ineffective [Not Recovered/Not Resolved]
